FAERS Safety Report 7450939-8 (Version None)
Quarter: 2011Q2

REPORT INFORMATION
  Report Type: 
  Country: None (occurrence: None)
  Receive Date: 20110429
  Receipt Date: 20110429
  Transmission Date: 20111010
  Serious: Yes (Other)
  Sender: FDA-Public Use
  Company Number: None

PATIENT
  Age: 70 Year
  Sex: Male
  Weight: 83.9154 kg

DRUGS (2)
  1. FLUTICASONE PROPIONATE [Suspect]
     Indication: SINUSITIS
     Dosage: 50 MCG 2 SPRAYS DAILY NASAL
     Route: 045
     Dates: start: 20110414, end: 20110414
  2. GENERIC FLONASE RX. [Concomitant]

REACTIONS (2)
  - OPTIC ISCHAEMIC NEUROPATHY [None]
  - DRY MOUTH [None]
